FAERS Safety Report 5519886-2 (Version None)
Quarter: 2007Q4

REPORT INFORMATION
  Report Type: 
  Country: None (occurrence: None)
  Receive Date: 20071116
  Receipt Date: 20071009
  Transmission Date: 20080405
  Serious: No
  Sender: FDA-Public Use
  Company Number: A0686684A

PATIENT
  Age: 53 Year
  Sex: Male

DRUGS (4)
  1. COREG CR [Suspect]
     Indication: EJECTION FRACTION DECREASED
     Dosage: 80MG PER DAY
     Route: 048
  2. DIAVAN [Concomitant]
  3. UNKNOWN MEDICATION [Concomitant]
  4. METFORMIN HCL [Concomitant]

REACTIONS (1)
  - FATIGUE [None]
